FAERS Safety Report 13250680 (Version 1)
Quarter: 2017Q1

REPORT INFORMATION
  Report Type: Spontaneous
  Country: ES (occurrence: ES)
  Receive Date: 20170220
  Receipt Date: 20170220
  Transmission Date: 20170428
  Serious: Yes (Other)
  Sender: FDA-Public Use
  Company Number: ES-ENDO PHARMACEUTICALS INC-2017-000744

PATIENT

DRUGS (3)
  1. DEXAMETHASONE W/TOBRAMYCIN [Concomitant]
     Indication: POSTOPERATIVE CARE
     Dosage: 1/3 MG/ML
     Route: 061
  2. CIPROFLOXACIN. [Concomitant]
     Active Substance: CIPROFLOXACIN
     Indication: POSTOPERATIVE CARE
     Dosage: 3 MG/ML, UNKNOWN
     Route: 065
  3. METHYLPREDNISOLONE TABLETS [Suspect]
     Active Substance: METHYLPREDNISOLONE
     Indication: JUVENILE IDIOPATHIC ARTHRITIS
     Dosage: 10 MG/24H FOR 20 YEARS
     Route: 048

REACTIONS (1)
  - Hypotony of eye [Recovered/Resolved]
